FAERS Safety Report 19822583 (Version 1)
Quarter: 2021Q3

REPORT INFORMATION
  Report Type: Spontaneous
  Country: IT (occurrence: IT)
  Receive Date: 20210913
  Receipt Date: 20210913
  Transmission Date: 20211014
  Serious: Yes (Death, Hospitalization, Other)
  Sender: FDA-Public Use
  Company Number: IT-AMGEN-ITANI2021137127

PATIENT
  Age: 51 Year
  Sex: Female

DRUGS (5)
  1. ELTROMBOPAG [Suspect]
     Active Substance: ELTROMBOPAG
     Indication: IMMUNE THROMBOCYTOPENIA
     Dosage: 75 MG
     Route: 048
     Dates: start: 20190625
  2. DANAZOL. [Suspect]
     Active Substance: DANAZOL
     Indication: THROMBOCYTOPENIA
     Dosage: 2 DF, QD
     Route: 048
     Dates: start: 20190710, end: 20190719
  3. RITUXIMAB. [Suspect]
     Active Substance: RITUXIMAB
     Indication: PRODUCT USED FOR UNKNOWN INDICATION
     Dosage: 375 MG, QD
     Route: 065
     Dates: start: 20190717
  4. ROMIPLOSTIM [Suspect]
     Active Substance: ROMIPLOSTIM
     Indication: PRODUCT USED FOR UNKNOWN INDICATION
     Dosage: UNK
     Route: 065
     Dates: start: 20190610, end: 20190625
  5. ELTROMBOPAG [Suspect]
     Active Substance: ELTROMBOPAG
     Dosage: UNK
     Route: 065
     Dates: start: 20120421, end: 20190609

REACTIONS (16)
  - Fatigue [Unknown]
  - Haemorrhage intracranial [Fatal]
  - Thrombocytopenia [Fatal]
  - Haematoma [Unknown]
  - Contusion [Unknown]
  - Mucosal haemorrhage [Not Recovered/Not Resolved]
  - Epistaxis [Not Recovered/Not Resolved]
  - Splenomegaly [Not Recovered/Not Resolved]
  - Anaemia [Unknown]
  - Nervous system disorder [Fatal]
  - Platelet count decreased [Unknown]
  - Hepatomegaly [Not Recovered/Not Resolved]
  - Intermenstrual bleeding [Unknown]
  - Myelofibrosis [Not Recovered/Not Resolved]
  - Haemorrhage [Unknown]
  - Headache [Unknown]

NARRATIVE: CASE EVENT DATE: 20190620
